FAERS Safety Report 15948541 (Version 1)
Quarter: 2019Q1

REPORT INFORMATION
  Report Type: Spontaneous
  Country: DE (occurrence: DE)
  Receive Date: 20190212
  Receipt Date: 20190212
  Transmission Date: 20190417
  Serious: Yes (Other)
  Sender: FDA-Public Use
  Company Number: DE-ACCORD-106935

PATIENT
  Age: 1 Day
  Sex: Male
  Weight: 3.28 kg

DRUGS (7)
  1. LORAZEPAM. [Suspect]
     Active Substance: LORAZEPAM
     Indication: PANIC DISORDER
     Dosage: 3 MG/D / 1-3 MG/D, IF REQUIRED, BUT DAILY
     Route: 064
  2. QUETIAPINE. [Suspect]
     Active Substance: QUETIAPINE
     Indication: RESTLESSNESS
     Dosage: 250 MG/D / 150MG RETARDED
     Route: 064
     Dates: start: 20161115, end: 20170821
  3. PROMETHAZINE [Suspect]
     Active Substance: PROMETHAZINE\PROMETHAZINE HYDROCHLORIDE
     Indication: SLEEP DISORDER
     Dosage: 50 MG/D
     Route: 064
     Dates: start: 20161115, end: 20170821
  4. FOLIC ACID. [Concomitant]
     Active Substance: FOLIC ACID
     Indication: PROPHYLAXIS OF NEURAL TUBE DEFECT
     Route: 064
  5. PREGABALIN. [Suspect]
     Active Substance: PREGABALIN
     Indication: ANXIETY DISORDER
     Dosage: 450 MG/D / THERAPY STOPPED IN WEEK 5, THERAPY RE-STARTED IN WEEK 34+3
     Route: 064
  6. CYMBALTA [Suspect]
     Active Substance: DULOXETINE HYDROCHLORIDE
     Indication: DEPRESSION
     Dosage: 120 MG/D / VARYING DOSAGE 60-120 MG/D
     Route: 064
  7. MISOPROSTOL. [Concomitant]
     Active Substance: MISOPROSTOL
     Indication: LABOUR INDUCTION
     Route: 064

REACTIONS (3)
  - Respiratory disorder neonatal [Recovered/Resolved]
  - Foetal exposure during pregnancy [Unknown]
  - Drug withdrawal syndrome neonatal [Recovered/Resolved]

NARRATIVE: CASE EVENT DATE: 20170821
